FAERS Safety Report 21093624 (Version 1)
Quarter: 2022Q3

REPORT INFORMATION
  Report Type: Spontaneous
  Country: US (occurrence: None)
  Receive Date: 20220718
  Receipt Date: 20220718
  Transmission Date: 20221027
  Serious: No
  Sender: FDA-Public Use
  Company Number: 2022A200694

PATIENT
  Age: 59 Year
  Sex: Male
  Weight: 82.6 kg

DRUGS (4)
  1. BYDUREON BCISE [Suspect]
     Active Substance: EXENATIDE
     Indication: Type 2 diabetes mellitus
     Route: 058
     Dates: start: 2020
  2. METFORMIN [Concomitant]
     Active Substance: METFORMIN HYDROCHLORIDE
     Route: 065
  3. GLIPIZIDE [Concomitant]
     Active Substance: GLIPIZIDE
     Route: 065
  4. JARDIANCE [Concomitant]
     Active Substance: EMPAGLIFLOZIN
     Route: 065

REACTIONS (4)
  - Injection site haemorrhage [Unknown]
  - Wrong technique in device usage process [Unknown]
  - Incorrect disposal of product [Unknown]
  - Device malfunction [Unknown]

NARRATIVE: CASE EVENT DATE: 20200101
